FAERS Safety Report 12090326 (Version 2)
Quarter: 2016Q1

REPORT INFORMATION
  Report Type: Report from Study
  Country: ES (occurrence: ES)
  Receive Date: 20160218
  Receipt Date: 20160226
  Transmission Date: 20160526
  Serious: Yes (Hospitalization)
  Sender: FDA-Public Use
  Company Number: ES-PFIZER INC-2016089065

PATIENT
  Age: 48 Year
  Sex: Male

DRUGS (11)
  1. ALPRAZOLAM. [Suspect]
     Active Substance: ALPRAZOLAM
     Dosage: UNK
     Route: 048
     Dates: start: 20150714
  2. ISONIXIN [Suspect]
     Active Substance: ISONIXIN
     Dosage: 10 DF, SINGLE
     Route: 048
     Dates: start: 20150714, end: 20150714
  3. RABEPRAZOLE [Concomitant]
     Active Substance: RABEPRAZOLE
     Dosage: 1 DF IN THE MONRING, 1 DF AT NIGHT
  4. TRYPTIZOL [Concomitant]
     Active Substance: AMITRIPTYLINE HYDROCHLORIDE
     Dosage: 25 MG, 2X/DAY (1 DF AT NOON, 1 DF AT NIGHT)
  5. PAROXETINE [Concomitant]
     Active Substance: PAROXETINE\PAROXETINE HYDROCHLORIDE
     Dosage: 1 DF IN THE MORNIGN, 1 DF AT NIGHT
  6. DICLOFENAC [Concomitant]
     Active Substance: DICLOFENAC
     Dosage: 2 DF, 1X/DAY (AT NIGHT)
  7. LYRICA [Suspect]
     Active Substance: PREGABALIN
     Indication: SUICIDE ATTEMPT
     Dosage: 150 MG, UNK
     Route: 048
  8. ALPRAZOLAM. [Suspect]
     Active Substance: ALPRAZOLAM
     Indication: SUICIDE ATTEMPT
     Dosage: 2 DF, 1X/DAY (IN THE MORNING)
     Route: 048
  9. LYRICA [Suspect]
     Active Substance: PREGABALIN
     Dosage: 12 DF, SINGLE
     Route: 048
     Dates: start: 20150714, end: 20150714
  10. ALPRAZOLAM. [Suspect]
     Active Substance: ALPRAZOLAM
     Dosage: 40 MG, SINGLE (20 TABLETS OF 2 MG)
     Route: 048
     Dates: start: 20150714, end: 20150714
  11. ISONIXIN [Suspect]
     Active Substance: ISONIXIN
     Indication: SUICIDE ATTEMPT
     Dosage: HALF DF IN THE MORNINGS, 1 DF AT NOON, 1 DF AT NIGHTS
     Route: 048

REACTIONS (4)
  - Stupor [Recovering/Resolving]
  - Mydriasis [Recovering/Resolving]
  - Suicide attempt [Recovering/Resolving]
  - Bradypnoea [Recovering/Resolving]

NARRATIVE: CASE EVENT DATE: 20150714
